FAERS Safety Report 15552319 (Version 1)
Quarter: 2018Q4

REPORT INFORMATION
  Report Type: Spontaneous
  Country: CN (occurrence: CN)
  Receive Date: 20181025
  Receipt Date: 20181025
  Transmission Date: 20190205
  Serious: Yes (Death, Hospitalization, Other)
  Sender: FDA-Public Use
  Company Number: CN-SA-2018SA291923

PATIENT
  Age: 51 Year
  Sex: Female
  Weight: 50 kg

DRUGS (8)
  1. EPHEDRINE. [Suspect]
     Active Substance: EPHEDRINE
     Dosage: 15 MG, UNK
     Route: 065
  2. ROPIVACAINE. [Concomitant]
     Active Substance: ROPIVACAINE HYDROCHLORIDE
     Route: 065
  3. CISATRACURIUM. [Concomitant]
     Active Substance: CISATRACURIUM
     Indication: HYPOTONIA
     Route: 065
  4. PHENYLEPHRINE HYDROCHLORIDE. [Suspect]
     Active Substance: PHENYLEPHRINE HYDROCHLORIDE
     Dosage: 100 UG, UNK
     Route: 065
  5. PROPOFOL. [Concomitant]
     Active Substance: PROPOFOL
     Dosage: 6 MG/KG, QH
     Route: 042
  6. FENTANYL. [Concomitant]
     Active Substance: FENTANYL
     Route: 065
  7. VECURONIUM [Concomitant]
     Active Substance: VECURONIUM BROMIDE
     Route: 065
  8. PHENYLEPHRINE HYDROCHLORIDE. [Suspect]
     Active Substance: PHENYLEPHRINE HYDROCHLORIDE
     Dosage: 80 UG, UNK
     Route: 065

REACTIONS (10)
  - Cardiac arrest [Fatal]
  - Liver disorder [Unknown]
  - Ventricular fibrillation [Fatal]
  - Lung infection [Unknown]
  - Hypoxia [Unknown]
  - Blood pressure decreased [Fatal]
  - Coagulopathy [Unknown]
  - Renal impairment [Unknown]
  - Hypercapnia [Unknown]
  - Therapeutic response decreased [Unknown]
